FAERS Safety Report 20300201 (Version 3)
Quarter: 2022Q3

REPORT INFORMATION
  Report Type: Spontaneous
  Country: CA (occurrence: CA)
  Receive Date: 20220105
  Receipt Date: 20220906
  Transmission Date: 20221027
  Serious: Yes (Death, Hospitalization, Other)
  Sender: FDA-Public Use
  Company Number: CA-PFIZER INC-2019330602

PATIENT
  Age: 58 Year
  Sex: Female

DRUGS (1)
  1. IBRANCE [Suspect]
     Active Substance: PALBOCICLIB
     Dosage: UNK
     Dates: start: 20190128, end: 2019

REACTIONS (9)
  - Neoplasm progression [Fatal]
  - Dementia [Unknown]
  - Catheter placement [Unknown]
  - Back pain [Unknown]
  - Malaise [Unknown]
  - Peripheral swelling [Unknown]
  - Visual impairment [Unknown]
  - Anal incontinence [Unknown]
  - Movement disorder [Unknown]

NARRATIVE: CASE EVENT DATE: 20190101
